FAERS Safety Report 5059502-X (Version None)
Quarter: 2006Q3

REPORT INFORMATION
  Report Type: 
  Country: None (occurrence: None)
  Receive Date: 20060724
  Receipt Date: 20060712
  Transmission Date: 20061208
  Serious: Yes (Other)
  Sender: FDA-Public Use
  Company Number: PHEH2006US08949

PATIENT
  Age: 86 Year
  Sex: Female

DRUGS (1)
  1. ZELNORM [Suspect]
     Indication: CONSTIPATION
     Dosage: 2 MG, ONCE/SINGLE
     Route: 048
     Dates: start: 20060711, end: 20060711

REACTIONS (3)
  - ASTHENIA [None]
  - DIARRHOEA [None]
  - TREMOR [None]
